FAERS Safety Report 10347993 (Version 2)
Quarter: 2014Q3

REPORT INFORMATION
  Report Type: Report from Study
  Country: FR (occurrence: FR)
  Receive Date: 20140729
  Receipt Date: 20140729
  Transmission Date: 20150326
  Serious: Yes (Hospitalization)
  Sender: FDA-Public Use
  Company Number: FR-PFIZER INC-2014010866

PATIENT
  Age: 79 Year
  Sex: Male

DRUGS (3)
  1. PLACEBO [Suspect]
     Active Substance: UNSPECIFIED INGREDIENT
     Indication: HEPATOCELLULAR CARCINOMA
     Dosage: 37.5 MG, DAILY, CYCLIC
     Dates: start: 20131212, end: 20140107
  2. DOXORUBICIN HCL [Suspect]
     Active Substance: DOXORUBICIN HYDROCHLORIDE
     Indication: HEPATOCELLULAR CARCINOMA
     Dosage: 150 MG, CYCLIC
     Dates: start: 20131218, end: 20140107
  3. BLINDED SUNITINIB MALATE [Suspect]
     Active Substance: SUNITINIB MALATE
     Indication: HEPATOCELLULAR CARCINOMA
     Dosage: 37.5 MG, DAILY, CYCLIC
     Dates: start: 20131212, end: 20140107

REACTIONS (3)
  - Abdominal pain upper [Recovered/Resolved]
  - General physical health deterioration [Recovered/Resolved]
  - Hepatic encephalopathy [Recovered/Resolved]

NARRATIVE: CASE EVENT DATE: 20131220
